FAERS Safety Report 21541527 (Version 2)
Quarter: 2022Q4

REPORT INFORMATION
  Report Type: Report from Study
  Country: US (occurrence: US)
  Receive Date: 20221102
  Receipt Date: 20221104
  Transmission Date: 20230112
  Serious: No
  Sender: FDA-Public Use
  Company Number: US-ABBVIE-22K-163-4501398-00

PATIENT
  Sex: Female

DRUGS (4)
  1. IMBRUVICA [Suspect]
     Active Substance: IBRUTINIB
     Indication: Chronic lymphocytic leukaemia
     Dosage: LAST ADMINISTRATION DATE WAS 2022.
     Route: 048
     Dates: start: 20220612
  2. IMBRUVICA [Suspect]
     Active Substance: IBRUTINIB
     Indication: Chronic lymphocytic leukaemia
     Route: 048
  3. IMBRUVICA [Suspect]
     Active Substance: IBRUTINIB
     Indication: Chronic lymphocytic leukaemia
     Route: 048
  4. IMBRUVICA [Suspect]
     Active Substance: IBRUTINIB
     Indication: Chronic lymphocytic leukaemia
     Route: 048

REACTIONS (17)
  - Musculoskeletal chest pain [Unknown]
  - Appetite disorder [Unknown]
  - Spinal pain [Unknown]
  - Bone disorder [Unknown]
  - Arthralgia [Unknown]
  - Impaired healing [Unknown]
  - Loss of personal independence in daily activities [Unknown]
  - Peripheral swelling [Unknown]
  - Bone pain [Not Recovered/Not Resolved]
  - Joint swelling [Unknown]
  - Discharge [Unknown]
  - Unevaluable event [Unknown]
  - Pain [Unknown]
  - Weight decreased [Unknown]
  - Contusion [Unknown]
  - Myalgia [Not Recovered/Not Resolved]
  - Oedema peripheral [Not Recovered/Not Resolved]
